FAERS Safety Report 7504700-6 (Version None)
Quarter: 2011Q2

REPORT INFORMATION
  Report Type: 
  Country: None (occurrence: None)
  Receive Date: 20110525
  Receipt Date: 20110519
  Transmission Date: 20111010
  Serious: Yes (Other)
  Sender: FDA-Public Use
  Company Number: GB-MERCK-1105GBR00068

PATIENT
  Age: 50 Year
  Sex: Male

DRUGS (5)
  1. ATORVASTATIN [Suspect]
     Route: 065
  2. ZOCOR [Suspect]
     Route: 048
  3. ROSIGLITAZONE MALEATE [Suspect]
     Route: 065
  4. ZOCOR [Suspect]
     Route: 048
  5. FENOFIBRATE [Suspect]
     Route: 065

REACTIONS (2)
  - DRUG INTERACTION [None]
  - HIGH DENSITY LIPOPROTEIN DECREASED [None]
